FAERS Safety Report 8943381 (Version 1)
Quarter: 2012Q4

REPORT INFORMATION
  Report Type: 
  Country: CH (occurrence: US)
  Receive Date: 20121203
  Receipt Date: 20121203
  Transmission Date: 20130627
  Serious: Yes (Hospitalization, Other)
  Sender: FDA-Public Use
  Company Number: CH-009507513-1211CHE011581

PATIENT
  Age: 24 Year
  Sex: Female

DRUGS (1)
  1. MERCILON [Suspect]
     Indication: CONTRACEPTION
     Dosage: UNK, qd
     Route: 048
     Dates: start: 2006, end: 20120727

REACTIONS (1)
  - Pulmonary embolism [Recovered/Resolved]
